FAERS Safety Report 5524166-5 (Version None)
Quarter: 2007Q4

REPORT INFORMATION
  Report Type: 
  Country: None (occurrence: None)
  Receive Date: 20071121
  Receipt Date: 20071109
  Transmission Date: 20080405
  Serious: Yes (Hospitalization, Other)
  Sender: FDA-Public Use
  Company Number: US-PFIZER INC-2007077479

PATIENT
  Sex: Female

DRUGS (3)
  1. LYRICA [Suspect]
     Indication: FIBROMYALGIA
     Route: 048
  2. LISINOPRIL [Concomitant]
  3. CYMBALTA [Concomitant]

REACTIONS (2)
  - DEHYDRATION [None]
  - HYPERVENTILATION [None]
